FAERS Safety Report 5253257-1 (Version None)
Quarter: 2007Q1

REPORT INFORMATION
  Report Type: 
  Country: None (occurrence: None)
  Receive Date: 20070301
  Receipt Date: 20070220
  Transmission Date: 20070707
  Serious: Yes (Other)
  Sender: FDA-Public Use
  Company Number: 2007UW03288

PATIENT
  Age: 68 Year
  Sex: Male
  Weight: 91.2 kg

DRUGS (5)
  1. NEXIUM [Suspect]
     Indication: GASTROOESOPHAGEAL REFLUX DISEASE
     Route: 048
     Dates: start: 20010101
  2. SYNTHROID [Concomitant]
  3. OXYCONTIN [Concomitant]
  4. ABILIFY [Concomitant]
  5. ADDERALL 10 [Concomitant]

REACTIONS (1)
  - HIP FRACTURE [None]
